FAERS Safety Report 5057179-0 (Version None)
Quarter: 2006Q3

REPORT INFORMATION
  Report Type: 
  Country: None (occurrence: None)
  Receive Date: 20060721
  Receipt Date: 20050531
  Transmission Date: 20061208
  Serious: No
  Sender: FDA-Public Use
  Company Number: US-GLAXOSMITHKLINE-A0560567A

PATIENT
  Age: 84 Year
  Sex: Male

DRUGS (6)
  1. AVANDIA [Suspect]
     Dosage: 4MG PER DAY
     Route: 048
  2. LISINOPRIL [Concomitant]
  3. ISOSORBIDE [Concomitant]
  4. ZOCOR [Concomitant]
  5. ASPIRIN [Concomitant]
  6. ALBUTEROL SPIROS [Concomitant]

REACTIONS (1)
  - RHINORRHOEA [None]
